FAERS Safety Report 4406648-2 (Version None)
Quarter: 2004Q3

REPORT INFORMATION
  Report Type: 
  Country: None (occurrence: None)
  Receive Date: 20040720
  Receipt Date: 20040716
  Transmission Date: 20050211
  Serious: Yes (Hospitalization)
  Sender: FDA-Public Use
  Company Number: LTI2004A00163

PATIENT
  Age: 24 Year
  Sex: Female

DRUGS (4)
  1. OGAST 15 (LANSOPRAZOLE) (15 MILLIGRAM, CAPSULES) [Suspect]
     Indication: PROPHYLAXIS AGAINST GASTROINTESTINAL ULCER
     Dosage: OGAST 15 MG (LANSOPRAZOLE) (15 MILLIGRAM,CAPSULES) ORAL
     Route: 048
     Dates: start: 20040615
  2. TOPALGIC (TRAMADOL HYDROCHLORIDE) (1 DOSAGE FORMS, TABLETS) [Suspect]
     Indication: PAIN
     Dosage: 2 DF (1 DF, 2 IN 1 D) ORAL
     Route: 048
     Dates: start: 20040615
  3. BI-PROFENID (KETOPROFEN) (150 MILLIGRAM, TABLETS) [Suspect]
     Indication: ENTHESOPATHY
     Dosage: 300 MG (150 MG, 2 IN D) ORAL
     Route: 048
     Dates: start: 20040615, end: 20040622
  4. DAFALGAN (PARACETAMOL0 (500 MILLIGRAM, CAPSULES) [Suspect]
     Indication: PAIN
     Dosage: 3000 MG ORAL
     Route: 048
     Dates: start: 20040615

REACTIONS (3)
  - APHASIA [None]
  - ENCEPHALITIS [None]
  - HEADACHE [None]
